FAERS Safety Report 7415896-9 (Version None)
Quarter: 2011Q2

REPORT INFORMATION
  Report Type: 
  Country: None (occurrence: None)
  Receive Date: 20110414
  Receipt Date: 20110408
  Transmission Date: 20111010
  Serious: Yes (Disabling)
  Sender: FDA-Public Use
  Company Number: GB-TEVA-276445ISR

PATIENT
  Age: 42 Year
  Sex: Male

DRUGS (1)
  1. LISINOPRIL [Suspect]
     Indication: HYPERTENSION
     Dosage: 10 MILLIGRAM;
     Route: 048
     Dates: start: 20101213, end: 20110311

REACTIONS (1)
  - RAYNAUD'S PHENOMENON [None]
